FAERS Safety Report 15278960 (Version 2)
Quarter: 2018Q3

REPORT INFORMATION
  Report Type: Report from Study
  Country: None (occurrence: US)
  Receive Date: 20180815
  Receipt Date: 20180831
  Transmission Date: 20181010
  Serious: Yes (Hospitalization, Other)
  Sender: FDA-Public Use
  Company Number: US-ABBVIE-18K-163-2399454-00

PATIENT
  Age: 80 Year
  Sex: Male
  Weight: 93.07 kg

DRUGS (2)
  1. HUMIRA [Suspect]
     Active Substance: ADALIMUMAB
     Indication: PSORIASIS
  2. HUMIRA [Suspect]
     Active Substance: ADALIMUMAB
     Indication: PSORIATIC ARTHROPATHY
     Route: 058
     Dates: start: 2016

REACTIONS (24)
  - Photophobia [Unknown]
  - Gait inability [Recovering/Resolving]
  - Acute kidney injury [Recovering/Resolving]
  - Fall [Recovered/Resolved]
  - Urinary tract infection [Recovered/Resolved]
  - Myocardial infarction [Recovered/Resolved]
  - Viral infection [Unknown]
  - Weight decreased [Recovered/Resolved]
  - Prostatomegaly [Not Recovered/Not Resolved]
  - Foreign body sensation in eyes [Unknown]
  - Respiratory tract congestion [Recovered/Resolved]
  - Cataract [Recovered/Resolved]
  - Impaired driving ability [Not Recovered/Not Resolved]
  - Hypertension [Recovering/Resolving]
  - Fatigue [Not Recovered/Not Resolved]
  - Eye irritation [Unknown]
  - Lumbar spinal stenosis [Not Recovered/Not Resolved]
  - Pneumonia [Recovered/Resolved]
  - Dizziness [Recovering/Resolving]
  - Asthenia [Not Recovered/Not Resolved]
  - Urinary incontinence [Recovering/Resolving]
  - Paraesthesia [Not Recovered/Not Resolved]
  - Dysstasia [Not Recovered/Not Resolved]
  - Feeling hot [Not Recovered/Not Resolved]

NARRATIVE: CASE EVENT DATE: 2018
